FAERS Safety Report 6945376-6 (Version None)
Quarter: 2010Q3

REPORT INFORMATION
  Report Type: 
  Country: None (occurrence: None)
  Receive Date: 20100827
  Receipt Date: 20100813
  Transmission Date: 20110219
  Serious: Yes (Hospitalization)
  Sender: FDA-Public Use
  Company Number: PHHY2010MX53875

PATIENT
  Age: 77 Year
  Sex: Male

DRUGS (1)
  1. DIOVAN HCT [Suspect]
     Indication: HYPERTENSION
     Dosage: UNK
     Dates: start: 20090301

REACTIONS (2)
  - PROSTATIC DISORDER [None]
  - PROSTATIC OPERATION [None]
